FAERS Safety Report 16305367 (Version 1)
Quarter: 2019Q2

REPORT INFORMATION
  Report Type: Report from Study
  Country: KR (occurrence: KR)
  Receive Date: 20190513
  Receipt Date: 20190513
  Transmission Date: 20190711
  Serious: Yes (Hospitalization)
  Sender: FDA-Public Use
  Company Number: KR-SAMSUNG BIOEPIS-SB-2019-11399

PATIENT
  Age: 57 Year
  Sex: Male
  Weight: 49.8 kg

DRUGS (17)
  1. JANUVIA [Concomitant]
     Active Substance: SITAGLIPTIN PHOSPHATE
     Indication: DIABETES MELLITUS
     Route: 048
     Dates: start: 20190329, end: 20190403
  2. LASIX [Concomitant]
     Active Substance: FUROSEMIDE
     Indication: ABDOMINAL DISTENSION
     Route: 048
     Dates: start: 20181115, end: 20181203
  3. ALDACTONE [Concomitant]
     Active Substance: SPIRONOLACTONE
     Indication: ABDOMINAL DISTENSION
     Dosage: UNKNOWN STRENGTH
     Route: 048
     Dates: start: 20181114
  4. ALDACTONE [Concomitant]
     Active Substance: SPIRONOLACTONE
     Indication: OEDEMA PERIPHERAL
  5. DILATREND [Concomitant]
     Active Substance: CARVEDILOL
     Indication: ANGINA PECTORIS
     Route: 048
     Dates: start: 20070807
  6. SOLONDO [Concomitant]
     Active Substance: PREDNISOLONE
     Indication: CROHN^S DISEASE
     Route: 048
     Dates: start: 20181029, end: 20181113
  7. URSA [Concomitant]
     Active Substance: URSODIOL
     Indication: OCCUPATIONAL PHYSICAL PROBLEM
     Route: 048
     Dates: start: 20110409
  8. CRESTOR [Concomitant]
     Active Substance: ROSUVASTATIN CALCIUM
     Indication: ANGINA PECTORIS
     Route: 048
     Dates: start: 20081121
  9. REMALOCE [Suspect]
     Active Substance: INFLIXIMAB
     Indication: CROHN^S DISEASE
     Route: 065
     Dates: start: 20181224, end: 20181224
  10. ARONAMIN C PLUS [Concomitant]
     Indication: VITAMIN SUPPLEMENTATION
     Route: 048
     Dates: start: 20170704
  11. CLOPIDOGREL [Concomitant]
     Active Substance: CLOPIDOGREL BISULFATE
     Indication: ANGINA PECTORIS
     Route: 048
     Dates: start: 20081121
  12. REMALOCE [Suspect]
     Active Substance: INFLIXIMAB
     Indication: CROHN^S DISEASE
     Route: 065
     Dates: start: 20181126, end: 20181126
  13. TRITACE [Concomitant]
     Active Substance: RAMIPRIL
     Indication: ANGINA PECTORIS
     Route: 048
     Dates: start: 20081121
  14. PENTASA SR [Concomitant]
     Indication: CROHN^S DISEASE
     Route: 048
     Dates: start: 20110516
  15. STILNOX CR [Concomitant]
     Active Substance: ZOLPIDEM TARTRATE
     Indication: INSOMNIA
     Route: 048
     Dates: start: 20170912
  16. REMALOCE [Suspect]
     Active Substance: INFLIXIMAB
     Indication: CROHN^S DISEASE
     Route: 065
     Dates: start: 20181112, end: 20181112
  17. LASIX [Concomitant]
     Active Substance: FUROSEMIDE
     Indication: OEDEMA PERIPHERAL
     Route: 048
     Dates: start: 20190130, end: 20190418

REACTIONS (2)
  - Disseminated tuberculosis [Recovering/Resolving]
  - Biliary cirrhosis [Not Recovered/Not Resolved]

NARRATIVE: CASE EVENT DATE: 20181114
